FAERS Safety Report 9595731 (Version 1)
Quarter: 2013Q4

REPORT INFORMATION
  Report Type: Spontaneous
  Country: GB (occurrence: GB)
  Receive Date: 20131004
  Receipt Date: 20131004
  Transmission Date: 20140711
  Serious: Yes (Disabling, Other)
  Sender: FDA-Public Use
  Company Number: GB-JNJFOC-20131001029

PATIENT
  Age: 76 Year
  Sex: Male

DRUGS (6)
  1. XARELTO [Suspect]
     Indication: CEREBROVASCULAR ACCIDENT PROPHYLAXIS
     Route: 048
     Dates: start: 20130814, end: 20130826
  2. XARELTO [Suspect]
     Indication: ATRIAL FIBRILLATION
     Route: 048
     Dates: start: 20130814, end: 20130826
  3. PERINDOPRIL [Concomitant]
     Route: 048
  4. BENDROFLUMETHIAZIDE [Concomitant]
     Route: 048
  5. ALLOPURINOL [Concomitant]
     Route: 048
  6. DOXAZOSIN [Concomitant]
     Route: 048

REACTIONS (4)
  - Oedema peripheral [Recovered/Resolved]
  - Abasia [Recovered/Resolved]
  - Local swelling [Recovered/Resolved]
  - Pain [Recovered/Resolved]
